FAERS Safety Report 8345691-8 (Version None)
Quarter: 2012Q2

REPORT INFORMATION
  Report Type: 
  Country: None (occurrence: None)
  Receive Date: 20120508
  Receipt Date: 20110505
  Transmission Date: 20120825
  Serious: Yes (Death)
  Sender: FDA-Public Use
  Company Number: PHHY2011US116383

PATIENT

DRUGS (1)
  1. NILOTINIB [Suspect]
     Indication: ACUTE LYMPHOCYTIC LEUKAEMIA
     Dosage: 400 MG, BID
     Route: 048

REACTIONS (3)
  - PNEUMONIA [None]
  - PULMONARY HAEMORRHAGE [None]
  - POST PROCEDURAL COMPLICATION [None]
